FAERS Safety Report 19891515 (Version 3)
Quarter: 2022Q2

REPORT INFORMATION
  Report Type: Report from Study
  Country: BR (occurrence: BR)
  Receive Date: 20210927
  Receipt Date: 20220401
  Transmission Date: 20220721
  Serious: No
  Sender: FDA-Public Use
  Company Number: BR-NOVARTISPH-NVSC2021BR218319

PATIENT
  Sex: Female

DRUGS (3)
  1. KISQALI [Suspect]
     Active Substance: RIBOCICLIB
     Indication: Breast cancer metastatic
     Dosage: 600 MG (FOR 21 DAYS WITH A 7-DAY BREAK, BEGINNING OF 2021)
     Route: 065
     Dates: start: 2021
  2. ZOMETA [Suspect]
     Active Substance: ZOLEDRONIC ACID
     Indication: Bone disorder
     Dosage: UNK (EVERY OTHER MONTH)
     Route: 065
  3. FULVESTRANT [Suspect]
     Active Substance: FULVESTRANT
     Indication: Product used for unknown indication
     Dosage: UNK, QMO (2 INJECTION, BEGINNING OF 2021)
     Route: 065
     Dates: start: 2021

REACTIONS (1)
  - Emotional disorder [Unknown]
